FAERS Safety Report 24354355 (Version 3)
Quarter: 2024Q4

REPORT INFORMATION
  Report Type: Spontaneous
  Country: FR (occurrence: FR)
  Receive Date: 20240923
  Receipt Date: 20241217
  Transmission Date: 20250114
  Serious: Yes (Other)
  Sender: FERRING
  Company Number: FR-FERRINGPH-2024FE05299

PATIENT

DRUGS (1)
  1. PICOPREP [Suspect]
     Active Substance: ANHYDROUS CITRIC ACID\MAGNESIUM OXIDE\SODIUM PICOSULFATE
     Indication: Bowel preparation
     Dosage: 1RST POUCHE ON 4 PM 2ND POUCHE  ON AROUND  9-10 PM
     Route: 048
     Dates: start: 20240916, end: 20240916

REACTIONS (6)
  - Oesophagitis chemical [Recovered/Resolved]
  - Ulcerative gastritis [Recovered/Resolved]
  - Fatigue [Recovering/Resolving]
  - Weight decreased [Recovering/Resolving]
  - Social avoidant behaviour [Recovering/Resolving]
  - Treatment noncompliance [Recovered/Resolved]

NARRATIVE: CASE EVENT DATE: 20240916
